FAERS Safety Report 4457774-3 (Version None)
Quarter: 2004Q3

REPORT INFORMATION
  Report Type: 
  Country: None (occurrence: None)
  Receive Date: 20040917
  Receipt Date: 20040205
  Transmission Date: 20050211
  Serious: Yes (Other)
  Sender: FDA-Public Use
  Company Number: NSADSS2003014551

PATIENT
  Age: 63 Year
  Sex: Male

DRUGS (6)
  1. TOPAMAX [Suspect]
     Indication: MOOD SWINGS
     Dosage: 100 MG, 2 IN 1 DAY, ORAL
     Route: 048
     Dates: start: 20010419, end: 20030930
  2. ZYPREXA [Concomitant]
  3. CELEXA [Concomitant]
  4. WELLBUTRIN (BUPROPRION HYDROCHLORIDE) [Concomitant]
  5. TEGRETOL [Concomitant]
  6. MARIJUANA (CANNABIS) [Concomitant]

REACTIONS (4)
  - FLASHBACK [None]
  - HYPERSENSITIVITY [None]
  - PANIC ATTACK [None]
  - SYNCOPE [None]
